FAERS Safety Report 6233910-3 (Version None)
Quarter: 2009Q2

REPORT INFORMATION
  Report Type: 
  Country: None (occurrence: None)
  Receive Date: 20090618
  Receipt Date: 20090609
  Transmission Date: 20091009
  Serious: Yes (Hospitalization)
  Sender: FDA-Public Use
  Company Number: PHHY2009BE23080

PATIENT
  Age: 62 Year
  Sex: Male

DRUGS (3)
  1. RASILEZ [Suspect]
     Indication: HYPERTENSION
     Dosage: 150 MG DAILY
     Route: 048
     Dates: start: 20090518, end: 20090605
  2. ASAFLOW [Suspect]
  3. ANALGESICS [Suspect]
     Indication: ARTHROPATHY
     Dosage: IF NEEDED

REACTIONS (10)
  - BARRETT'S OESOPHAGUS [None]
  - BLOOD PRESSURE DECREASED [None]
  - CONDITION AGGRAVATED [None]
  - DUODENAL ULCER [None]
  - FATIGUE [None]
  - GASTRIC HAEMORRHAGE [None]
  - HAEMATEMESIS [None]
  - HAEMOGLOBIN DECREASED [None]
  - TRANSFUSION [None]
  - WEIGHT DECREASED [None]
